APPROVED DRUG PRODUCT: PERMAX
Active Ingredient: PERGOLIDE MESYLATE
Strength: EQ 0.25MG BASE
Dosage Form/Route: TABLET;ORAL
Application: N019385 | Product #002
Applicant: VALEANT PHARMACEUTICALS INTERNATIONAL
Approved: Dec 30, 1988 | RLD: No | RS: No | Type: DISCN